FAERS Safety Report 8924197 (Version 1)
Quarter: 2012Q4

REPORT INFORMATION
  Report Type: 
  Country: CA (occurrence: CA)
  Receive Date: 20121126
  Receipt Date: 20121126
  Transmission Date: 20130627
  Serious: Yes (Hospitalization)
  Sender: FDA-Public Use
  Company Number: CA-GLAXOSMITHKLINE-A1000779A

PATIENT
  Age: 71 None
  Sex: Male
  Weight: 77.3 kg

DRUGS (4)
  1. ADVAIR [Suspect]
     Indication: DYSPNOEA
     Dosage: 1PUFF Twice per day
     Route: 055
     Dates: end: 20121112
  2. RAMIPRIL [Concomitant]
     Dosage: 2.5MG Twice per day
  3. METOPROLOL [Concomitant]
     Dosage: 25MG Twice per day
  4. ASPIRIN [Concomitant]
     Indication: ANTICOAGULANT THERAPY
     Dosage: 162.5MG Twice per day

REACTIONS (4)
  - Myocardial infarction [Not Recovered/Not Resolved]
  - Retinal vascular occlusion [Unknown]
  - Vision blurred [Unknown]
  - Visual impairment [Unknown]
